FAERS Safety Report 6768770-5 (Version None)
Quarter: 2010Q2

REPORT INFORMATION
  Report Type: 
  Country: None (occurrence: None)
  Receive Date: 20100611
  Receipt Date: 20100602
  Transmission Date: 20101027
  Serious: Yes (Other)
  Sender: FDA-Public Use
  Company Number: 1000014262

PATIENT
  Age: 65 Year
  Sex: Female

DRUGS (5)
  1. THYROID TAB [Suspect]
     Indication: HYPOTHYROIDISM
     Dosage: 60 MG (60 MG, 1 IN 1 D), ORAL
     Route: 048
     Dates: start: 20060101, end: 20100525
  2. EFFEXOR [Concomitant]
  3. CRESTOR [Concomitant]
  4. M.V.I. [Concomitant]
  5. FISH OIL [Concomitant]

REACTIONS (6)
  - DISEASE RECURRENCE [None]
  - PHARYNGEAL OEDEMA [None]
  - PRODUCT FORMULATION ISSUE [None]
  - SUICIDAL IDEATION [None]
  - URTICARIA [None]
  - VERTIGO [None]
